FAERS Safety Report 14230169 (Version 1)
Quarter: 2017Q4

REPORT INFORMATION
  Report Type: Spontaneous
  Country: US (occurrence: US)
  Receive Date: 20171128
  Receipt Date: 20171128
  Transmission Date: 20180321
  Serious: Yes (Other)
  Sender: FDA-Public Use
  Company Number: US-AUROBINDO-AUR-APL-2017-43717

PATIENT
  Age: 42 Year
  Sex: Male

DRUGS (1)
  1. PREDNISONE. [Suspect]
     Active Substance: PREDNISONE
     Indication: PERIPHERAL SENSORY NEUROPATHY
     Dosage: 60 MG, DAILY
     Route: 065

REACTIONS (2)
  - Fine motor skill dysfunction [Recovering/Resolving]
  - Diabetes mellitus [Recovering/Resolving]
